FAERS Safety Report 5372735-8 (Version None)
Quarter: 2007Q2

REPORT INFORMATION
  Report Type: 
  Country: None (occurrence: None)
  Receive Date: 20070627
  Receipt Date: 20070618
  Transmission Date: 20071010
  Serious: Yes (Other)
  Sender: FDA-Public Use
  Company Number: US-PFIZER INC-2007031861

PATIENT
  Sex: Female
  Weight: 72 kg

DRUGS (4)
  1. LYRICA [Suspect]
     Indication: NEUROPATHY
     Dates: start: 20070201, end: 20070301
  2. PREDNISONE TAB [Suspect]
  3. METFORMIN/PIOGLITAZONE [Concomitant]
  4. VICODIN [Concomitant]

REACTIONS (1)
  - BLINDNESS [None]
